FAERS Safety Report 24412265 (Version 1)
Quarter: 2024Q4

REPORT INFORMATION
  Report Type: Spontaneous
  Country: DE (occurrence: DE)
  Receive Date: 20241008
  Receipt Date: 20241008
  Transmission Date: 20250114
  Serious: Yes (Other)
  Sender: TEVA
  Company Number: None

PATIENT
  Age: 74 Year
  Sex: Male
  Weight: 90 kg

DRUGS (3)
  1. SULFAMETHOXAZOLE\TRIMETHOPRIM [Suspect]
     Active Substance: SULFAMETHOXAZOLE\TRIMETHOPRIM
     Indication: Urinary tract infection
     Dosage: ORALLY 2X1,?COTRIM FORTE-RATIOPHARM 800 MG/160 MG TABLETS
     Route: 048
     Dates: start: 20240826, end: 20240904
  2. CANDESARTAN CILEXETIL\HYDROCHLOROTHIAZIDE [Concomitant]
     Active Substance: CANDESARTAN CILEXETIL\HYDROCHLOROTHIAZIDE
     Indication: Product used for unknown indication
     Dosage: 32 MG/ 12.5 MG
     Route: 065
  3. Vildagliptin metformin 1 A Pharma [Concomitant]
     Indication: Product used for unknown indication
     Dosage: VILDAGLIPTIN/METFORMIN HCL - 1 A PHARMA 50 MG/1000 MG
     Route: 065

REACTIONS (3)
  - Mental impairment [Unknown]
  - Rash macular [Recovering/Resolving]
  - Erythema [Recovered/Resolved]

NARRATIVE: CASE EVENT DATE: 20240901
